FAERS Safety Report 9457068 (Version 1)
Quarter: 2013Q3

REPORT INFORMATION
  Report Type: Spontaneous
  Country: US (occurrence: US)
  Receive Date: 20130814
  Receipt Date: 20130814
  Transmission Date: 20140515
  Serious: No
  Sender: FDA-Public Use
  Company Number: US-BIOGENIDEC-2013BI074548

PATIENT
  Age: 42 Year
  Sex: Female

DRUGS (1)
  1. AVONEX [Suspect]
     Indication: MULTIPLE SCLEROSIS
     Route: 030
     Dates: start: 20100426, end: 201307

REACTIONS (12)
  - General physical health deterioration [Unknown]
  - Loss of control of legs [Unknown]
  - Fall [Recovered/Resolved]
  - Head injury [Unknown]
  - Restless legs syndrome [Unknown]
  - Speech disorder [Unknown]
  - Mobility decreased [Unknown]
  - Asthenia [Unknown]
  - Depression [Unknown]
  - Pain in extremity [Unknown]
  - Muscular weakness [Unknown]
  - Insomnia [Unknown]
